FAERS Safety Report 18806744 (Version 1)
Quarter: 2021Q1

REPORT INFORMATION
  Report Type: Spontaneous
  Country: NL (occurrence: NL)
  Receive Date: 20210129
  Receipt Date: 20210129
  Transmission Date: 20210419
  Serious: Yes (Hospitalization)
  Sender: FDA-Public Use
  Company Number: NL-TEVA-2021-NL-1873268

PATIENT
  Sex: Male
  Weight: 68 kg

DRUGS (1)
  1. VANCOMYCINE PDR V INFVLST 1000MG / BRAND NAME NOT SPECIFIED [Suspect]
     Active Substance: VANCOMYCIN
     Indication: OSTEOMYELITIS
     Dosage: 4000 MILLIGRAM DAILY; I.V., THERAPY END DATE : ASKED BUT UNKNOWN
     Dates: start: 2020

REACTIONS (1)
  - Acute kidney injury [Recovered/Resolved]
